FAERS Safety Report 21341718 (Version 2)
Quarter: 2023Q1

REPORT INFORMATION
  Report Type: Spontaneous
  Country: US (occurrence: US)
  Receive Date: 20220916
  Receipt Date: 20230313
  Transmission Date: 20230417
  Serious: No
  Sender: FDA-Public Use
  Company Number: US-BRISTOL-MYERS SQUIBB COMPANY-2022-106474

PATIENT
  Age: 69 Year
  Sex: Male

DRUGS (2)
  1. POMALYST [Suspect]
     Active Substance: POMALIDOMIDE
     Indication: Monoclonal gammopathy
     Dosage: 3 WEEKS THEN 1 WEEK OFF
     Route: 048
     Dates: start: 20220818
  2. POMALYST [Suspect]
     Active Substance: POMALIDOMIDE
     Dosage: 1 CAP QD 21 DAYS THEN 7 DAYS OFF
     Route: 048
     Dates: start: 20211214

REACTIONS (2)
  - Diarrhoea [Unknown]
  - Off label use [Unknown]

NARRATIVE: CASE EVENT DATE: 20220909
